FAERS Safety Report 8904804 (Version 3)
Quarter: 2012Q4

REPORT INFORMATION
  Report Type: 
  Country: US (occurrence: US)
  Receive Date: 20121112
  Receipt Date: 20121204
  Transmission Date: 20130627
  Serious: Yes (Other)
  Sender: FDA-Public Use
  Company Number: US-PFIZER INC-2012279926

PATIENT
  Age: 90 Year
  Sex: Male

DRUGS (8)
  1. AMIODARONE HCL [Suspect]
     Indication: ARRHYTHMIA
     Dosage: 200 mg, daily
  2. AMIODARONE HCL [Suspect]
     Dosage: 100 mg, daily
  3. AMIODARONE HCL [Suspect]
     Dosage: UNK
  4. LEVETIRACETAM [Suspect]
     Indication: MYOCLONUS
     Dosage: 125 mg, 2x/day
  5. LEVETIRACETAM [Suspect]
     Indication: ABNORMAL GAIT
     Dosage: 250 mg, 2x/day
  6. CLONAZEPAM [Suspect]
     Indication: MYOCLONUS
     Dosage: 0.5 mg, UNK
  7. CLONAZEPAM [Suspect]
     Indication: ABNORMAL GAIT
  8. DIGOXIN [Concomitant]
     Indication: ARRHYTHMIA
     Dosage: UNK

REACTIONS (4)
  - Myoclonus [Recovering/Resolving]
  - Gait disturbance [Recovering/Resolving]
  - Somnolence [Unknown]
  - Fatigue [Unknown]
